FAERS Safety Report 7094036-2 (Version None)
Quarter: 2010Q4

REPORT INFORMATION
  Report Type: 
  Country: None (occurrence: None)
  Receive Date: 20101101
  Receipt Date: 20101013
  Transmission Date: 20110411
  Serious: Yes (Death)
  Sender: FDA-Public Use
  Company Number: FKO201000464

PATIENT
  Age: 63 Year
  Sex: Female

DRUGS (2)
  1. VINORELBINE [Suspect]
     Indication: BREAST CANCER METASTATIC
  2. TRASTUZUMAB (TRASTUZUMAB) (TRASTUZUMAB) [Concomitant]

REACTIONS (6)
  - CLOSTRIDIAL INFECTION [None]
  - HYPOTENSION [None]
  - MEGACOLON [None]
  - MULTI-ORGAN FAILURE [None]
  - NEUTROPENIC SEPSIS [None]
  - SEPTIC SHOCK [None]
